FAERS Safety Report 9463901 (Version 4)
Quarter: 2013Q4

REPORT INFORMATION
  Report Type: Spontaneous
  Country: US (occurrence: US)
  Receive Date: 20130819
  Receipt Date: 20131231
  Transmission Date: 20140711
  Serious: Yes (Other)
  Sender: FDA-Public Use
  Company Number: US-JNJFOC-20130806308

PATIENT
  Age: 65 Year
  Sex: Female
  Weight: 77.11 kg

DRUGS (16)
  1. REMICADE [Suspect]
     Indication: COLITIS ULCERATIVE
     Dosage: LAST DOSE WAS ADMINISTERED
     Route: 042
     Dates: start: 20130904
  2. REMICADE [Suspect]
     Indication: COLITIS ULCERATIVE
     Route: 042
     Dates: start: 201303
  3. REMICADE [Suspect]
     Indication: COLITIS ULCERATIVE
     Route: 042
  4. REMICADE [Suspect]
     Indication: COLITIS ULCERATIVE
     Route: 042
     Dates: start: 2012
  5. TRAZODONE [Suspect]
     Indication: SLEEP DISORDER
     Dosage: ONCE EVERY NIGHT
     Route: 048
     Dates: start: 2011
  6. FOSAMAX [Suspect]
     Indication: OSTEOPOROSIS
     Route: 048
     Dates: start: 2010
  7. LEVOTHYROXINE [Suspect]
     Indication: HYPOTHYROIDISM
     Route: 048
  8. VAGIFEM [Suspect]
     Indication: PRODUCT USED FOR UNKNOWN INDICATION
     Route: 065
  9. PRAVASTATIN [Suspect]
     Indication: BLOOD CHOLESTEROL
     Route: 065
  10. COLAZAL [Concomitant]
     Indication: GASTROINTESTINAL DISORDER
     Route: 048
     Dates: start: 2010
  11. HYOSCYAMINE [Concomitant]
     Indication: GASTROINTESTINAL PAIN
     Route: 060
     Dates: start: 2010
  12. XANAX [Concomitant]
     Indication: ANXIETY
     Route: 065
  13. SYNTHROID [Concomitant]
     Indication: THYROID DISORDER
     Route: 065
  14. PREMARIN [Concomitant]
     Indication: ELECTROLYTE SUBSTITUTION THERAPY
     Route: 065
  15. CALCIUM [Concomitant]
     Indication: BONE DISORDER
     Route: 065
  16. FOSAMAX [Concomitant]
     Indication: BONE DISORDER
     Route: 065

REACTIONS (12)
  - Fibromyalgia [Unknown]
  - Arthritis [Recovering/Resolving]
  - Arthropathy [Not Recovered/Not Resolved]
  - Chest pain [Not Recovered/Not Resolved]
  - Antibody test positive [Not Recovered/Not Resolved]
  - Amnesia [Not Recovered/Not Resolved]
  - Insomnia [Not Recovered/Not Resolved]
  - Hot flush [Not Recovered/Not Resolved]
  - Stomatitis [Not Recovered/Not Resolved]
  - Feeling abnormal [Not Recovered/Not Resolved]
  - Dizziness [Not Recovered/Not Resolved]
  - Fatigue [Not Recovered/Not Resolved]
